FAERS Safety Report 8017226-0 (Version None)
Quarter: 2012Q1

REPORT INFORMATION
  Report Type: 
  Country: None (occurrence: None)
  Receive Date: 20120102
  Receipt Date: 20111227
  Transmission Date: 20120608
  Serious: Yes (Other)
  Sender: FDA-Public Use
  Company Number: PHHY2011IT113313

PATIENT
  Age: 51 Year
  Sex: Female

DRUGS (1)
  1. EXTAVIA [Suspect]

REACTIONS (4)
  - GENITAL TRACT INFLAMMATION [None]
  - RESPIRATORY TRACT INFLAMMATION [None]
  - RENAL DISORDER [None]
  - BLISTER [None]
